FAERS Safety Report 21547879 (Version 1)
Quarter: 2022Q4

REPORT INFORMATION
  Report Type: Report from Study
  Country: JP (occurrence: JP)
  Receive Date: 20221103
  Receipt Date: 20221103
  Transmission Date: 20230113
  Serious: Yes (Death, Hospitalization, Other)
  Sender: FDA-Public Use
  Company Number: JP-KYOWAKIRIN-2021AKK016915

PATIENT

DRUGS (38)
  1. MOGAMULIZUMAB [Suspect]
     Active Substance: MOGAMULIZUMAB
     Indication: Adult T-cell lymphoma/leukaemia
     Dosage: 1 MG/KG, 1X/4 WEEKS
     Route: 041
     Dates: start: 20190215, end: 20190314
  2. MOGAMULIZUMAB [Suspect]
     Active Substance: MOGAMULIZUMAB
     Dosage: 1 MG/KG, 1X/3 WEEKS
     Route: 041
     Dates: start: 20190403, end: 20190605
  3. CYCLOPHOSPHAMIDE [Suspect]
     Active Substance: CYCLOPHOSPHAMIDE
     Indication: Adult T-cell lymphoma/leukaemia
     Dosage: UNK
     Route: 065
  4. DOXORUBICIN HYDROCHLORIDE [Suspect]
     Active Substance: DOXORUBICIN HYDROCHLORIDE
     Indication: Adult T-cell lymphoma/leukaemia
     Dosage: UNK
     Route: 065
  5. VINCRISTINE SULFATE [Suspect]
     Active Substance: VINCRISTINE SULFATE
     Indication: Adult T-cell lymphoma/leukaemia
     Dosage: UNK
     Route: 065
  6. PREDNISOLONE [Suspect]
     Active Substance: PREDNISOLONE
     Indication: Adult T-cell lymphoma/leukaemia
     Dosage: UNK
     Route: 065
  7. DIPHENHYDRAMINE [Concomitant]
     Active Substance: DIPHENHYDRAMINE
     Indication: Prophylaxis
     Dosage: UNK UNK, 1X/4 WEEKS
     Route: 065
     Dates: start: 20190215, end: 20190314
  8. DIPHENHYDRAMINE [Concomitant]
     Active Substance: DIPHENHYDRAMINE
     Dosage: UNK UNK, 1X/3 WEEKS
     Route: 065
     Dates: start: 20190403, end: 20190605
  9. ACETAMINOPHEN [Concomitant]
     Active Substance: ACETAMINOPHEN
     Indication: Prophylaxis
     Dosage: UNK UNK, 1X/4 WEEKS
     Route: 065
     Dates: start: 20190215, end: 20190314
  10. ACETAMINOPHEN [Concomitant]
     Active Substance: ACETAMINOPHEN
     Dosage: UNK UNK, 1X/3 WEEKS
     Route: 065
     Dates: start: 20190403, end: 20190605
  11. PREDNISOLONE [Concomitant]
     Active Substance: PREDNISOLONE
     Indication: Prophylaxis
     Dosage: 60 MG, 1X/4 WEEKS
     Route: 048
     Dates: start: 20190215, end: 20190314
  12. PREDNISOLONE [Concomitant]
     Active Substance: PREDNISOLONE
     Dosage: 60 MG
     Route: 048
     Dates: start: 20190403, end: 20190403
  13. PREDNISOLONE [Concomitant]
     Active Substance: PREDNISOLONE
     Dosage: 100 MG, 1X/3 WEEKS
     Route: 048
     Dates: start: 20190424, end: 20190605
  14. SOLU-CORTEF [Concomitant]
     Active Substance: HYDROCORTISONE SODIUM SUCCINATE
     Indication: Prophylaxis
     Dosage: UNK UNK, 1X/4 WEEKS
     Route: 065
     Dates: start: 20190215, end: 20190314
  15. SOLU-CORTEF [Concomitant]
     Active Substance: HYDROCORTISONE SODIUM SUCCINATE
     Dosage: UNK UNK, 1X/3 WEEKS
     Route: 065
     Dates: start: 20190424, end: 20190605
  16. ALOXI [Concomitant]
     Active Substance: PALONOSETRON HYDROCHLORIDE
     Indication: Prophylaxis
     Dosage: UNK
     Route: 042
     Dates: start: 20190403, end: 20190403
  17. GRANISETRON HYDROCHLORIDE [Concomitant]
     Active Substance: GRANISETRON HYDROCHLORIDE
     Indication: Prophylaxis
     Dosage: UNK UNK, 1X/3 WEEKS
     Route: 041
     Dates: start: 20190424, end: 20190605
  18. SULFAMETHOXAZOLE\TRIMETHOPRIM [Concomitant]
     Active Substance: SULFAMETHOXAZOLE\TRIMETHOPRIM
     Indication: Infection prophylaxis
     Dosage: UNK
     Route: 048
     Dates: start: 20190215, end: 20190226
  19. SULFAMETHOXAZOLE\TRIMETHOPRIM [Concomitant]
     Active Substance: SULFAMETHOXAZOLE\TRIMETHOPRIM
     Dosage: UNK
     Route: 048
     Dates: start: 20190409
  20. FLUCONAZOLE [Concomitant]
     Active Substance: FLUCONAZOLE
     Indication: Infection prophylaxis
     Dosage: UNK
     Route: 048
     Dates: start: 20190215
  21. URSODIOL [Concomitant]
     Active Substance: URSODIOL
     Indication: Product used for unknown indication
     Dosage: UNK
     Route: 048
  22. AMLODIPINE BESYLATE [Concomitant]
     Active Substance: AMLODIPINE BESYLATE
     Indication: Product used for unknown indication
     Dosage: UNK
     Route: 048
  23. FEBUXOSTAT [Concomitant]
     Active Substance: FEBUXOSTAT
     Indication: Prophylaxis
     Dosage: UNK
     Route: 048
     Dates: end: 20190221
  24. VONOPRAZAN FUMARATE [Concomitant]
     Active Substance: VONOPRAZAN FUMARATE
     Indication: Prophylaxis
     Dosage: UNK
     Route: 048
  25. MAGNESIUM OXIDE [Concomitant]
     Active Substance: MAGNESIUM OXIDE
     Indication: Constipation
     Dosage: UNK
     Route: 048
     Dates: start: 20190217
  26. SENNOSIDES A AND B [Concomitant]
     Active Substance: SENNOSIDES A AND B
     Indication: Constipation
     Dosage: UNK
     Route: 048
     Dates: start: 20190217, end: 20190708
  27. FILGRASTIM [Concomitant]
     Active Substance: FILGRASTIM
     Indication: Prophylaxis
     Dosage: UNK
     Route: 065
     Dates: start: 20190216, end: 20190225
  28. FILGRASTIM [Concomitant]
     Active Substance: FILGRASTIM
     Dosage: UNK
     Route: 065
     Dates: start: 20190315, end: 20190325
  29. FILGRASTIM [Concomitant]
     Active Substance: FILGRASTIM
     Dosage: UNK
     Route: 065
     Dates: start: 20190405, end: 20190408
  30. FILGRASTIM [Concomitant]
     Active Substance: FILGRASTIM
     Dosage: UNK
     Route: 065
     Dates: start: 20190411, end: 20190413
  31. FEBUXOSTAT [Concomitant]
     Active Substance: FEBUXOSTAT
     Indication: Prophylaxis
     Dosage: UNK
     Route: 048
     Dates: start: 20190222, end: 20190226
  32. FEBUXOSTAT [Concomitant]
     Active Substance: FEBUXOSTAT
     Dosage: UNK
     Route: 048
     Dates: start: 20190308, end: 20190320
  33. AMOXICILLIN [Concomitant]
     Active Substance: AMOXICILLIN
     Indication: Pyrexia
     Dosage: UNK
     Route: 048
     Dates: start: 20190301, end: 20190310
  34. LOXOPROFEN SODIUM [Concomitant]
     Active Substance: LOXOPROFEN SODIUM
     Indication: Pyrexia
     Dosage: UNK
     Route: 048
     Dates: start: 20190301, end: 20190307
  35. SODIUM PICOSULFATE [Concomitant]
     Active Substance: SODIUM PICOSULFATE
     Indication: Constipation
     Dosage: UNK
     Route: 048
     Dates: start: 20190215
  36. SODIUM PICOSULFATE [Concomitant]
     Active Substance: SODIUM PICOSULFATE
     Indication: Prophylaxis
  37. MAXIPIME [Concomitant]
     Active Substance: CEFEPIME HYDROCHLORIDE
     Indication: Infection prophylaxis
     Dosage: UNK
     Route: 065
     Dates: start: 20190319, end: 20190326
  38. AMITIZA [Concomitant]
     Active Substance: LUBIPROSTONE
     Indication: Constipation
     Dosage: UNK
     Route: 048
     Dates: start: 20190405, end: 20190806

REACTIONS (24)
  - Death [Fatal]
  - Neuropathy peripheral [Unknown]
  - Herpes zoster [Recovered/Resolved]
  - Polyneuropathy [Unknown]
  - Lymph node pain [Unknown]
  - Proctitis [Recovered/Resolved]
  - Lymphocyte count decreased [Recovered/Resolved]
  - Platelet count decreased [Recovered/Resolved]
  - Blood creatinine increased [Recovered/Resolved]
  - Pyrexia [Recovered/Resolved]
  - Pyrexia [Recovered/Resolved]
  - Anaemia [Not Recovered/Not Resolved]
  - Weight decreased [Not Recovered/Not Resolved]
  - Constipation [Recovered/Resolved]
  - White blood cell count decreased [Recovered/Resolved]
  - Neutrophil count decreased [Recovered/Resolved]
  - Diarrhoea [Unknown]
  - Pyrexia [Recovered/Resolved]
  - Sputum retention [Recovered/Resolved]
  - Pain [Unknown]
  - Injury associated with device [Unknown]
  - Seborrhoeic dermatitis [Unknown]
  - Hyponatraemia [Not Recovered/Not Resolved]
  - Stomatitis [Unknown]

NARRATIVE: CASE EVENT DATE: 20190215
